FAERS Safety Report 4940121-8 (Version None)
Quarter: 2006Q1

REPORT INFORMATION
  Report Type: 
  Country: None (occurrence: None)
  Receive Date: 20060310
  Receipt Date: 20041027
  Transmission Date: 20060701
  Serious: Yes (Disabling)
  Sender: FDA-Public Use
  Company Number: US-ROCHE-384683

PATIENT
  Age: 14 Year
  Sex: Female
  Weight: 47.6 kg

DRUGS (1)
  1. ACCUTANE [Suspect]
     Indication: ACNE
     Route: 048
     Dates: start: 19930129, end: 19930715

REACTIONS (43)
  - ACTIVITIES OF DAILY LIVING IMPAIRED [None]
  - ANTINUCLEAR ANTIBODY POSITIVE [None]
  - ARTHRALGIA [None]
  - CAESAREAN SECTION [None]
  - CELLULITIS [None]
  - COLITIS [None]
  - COLITIS ULCERATIVE [None]
  - CYSTITIS [None]
  - DEHYDRATION [None]
  - DRUG EXPOSURE DURING PREGNANCY [None]
  - DRY SKIN [None]
  - DYSPHAGIA [None]
  - GASTROINTESTINAL DISORDER [None]
  - HALLUCINATION [None]
  - HEADACHE [None]
  - HYPOGLYCAEMIA [None]
  - INFLAMMATORY BOWEL DISEASE [None]
  - INFLUENZA [None]
  - INSOMNIA [None]
  - INTESTINAL HAEMORRHAGE [None]
  - KIDNEY INFECTION [None]
  - LIP DRY [None]
  - MACULAR CYST [None]
  - METRORRHAGIA [None]
  - MULTI-ORGAN DISORDER [None]
  - NAIL TINEA [None]
  - NIGHT BLINDNESS [None]
  - OSTEOARTHRITIS [None]
  - OTITIS EXTERNA [None]
  - PAIN IN EXTREMITY [None]
  - POLYARTHRITIS [None]
  - PREGNANCY [None]
  - PURPURA [None]
  - RAYNAUD'S PHENOMENON [None]
  - RECTAL HAEMORRHAGE [None]
  - ROAD TRAFFIC ACCIDENT [None]
  - SIGMOIDITIS [None]
  - SINUSITIS [None]
  - SKIN DISCOLOURATION [None]
  - STOMATITIS [None]
  - UPPER RESPIRATORY TRACT INFECTION [None]
  - VISION BLURRED [None]
  - VISUAL DISTURBANCE [None]
